FAERS Safety Report 23720666 (Version 2)
Quarter: 2024Q2

REPORT INFORMATION
  Report Type: Spontaneous
  Country: CN (occurrence: CN)
  Receive Date: 20240409
  Receipt Date: 20240622
  Transmission Date: 20240716
  Serious: Yes (Other)
  Sender: FDA-Public Use
  Company Number: CN-JNJFOC-20240401379

PATIENT
  Age: 67 Year
  Sex: Male
  Weight: 60 kg

DRUGS (1)
  1. DARZALEX [Suspect]
     Active Substance: DARATUMUMAB
     Indication: Plasma cell myeloma
     Route: 041
     Dates: start: 20240321, end: 20240321

REACTIONS (2)
  - Heart rate increased [Recovering/Resolving]
  - Brain natriuretic peptide increased [Recovering/Resolving]

NARRATIVE: CASE EVENT DATE: 20240321
